FAERS Safety Report 12312385 (Version 1)
Quarter: 2016Q2

REPORT INFORMATION
  Report Type: Spontaneous
  Country: DE (occurrence: DE)
  Receive Date: 20160428
  Receipt Date: 20160428
  Transmission Date: 20160815
  Serious: Yes (Other)
  Sender: FDA-Public Use
  Company Number: DE-AMGEN-DEUSP2016052233

PATIENT
  Age: 51 Year
  Sex: Female

DRUGS (3)
  1. ENBREL [Suspect]
     Active Substance: ETANERCEPT
     Indication: RHEUMATOID ARTHRITIS
     Dosage: 50 MG, WEEKLY
     Route: 065
     Dates: start: 20160309
  2. CORTISON [Concomitant]
     Active Substance: CORTISONE ACETATE
     Dosage: 2.5 MG, UNK
     Dates: start: 2016
  3. CORTISON [Concomitant]
     Active Substance: CORTISONE ACETATE
     Dosage: 5 MG, UNK

REACTIONS (3)
  - Condition aggravated [Unknown]
  - Rheumatoid arthritis [Unknown]
  - Injection site erythema [Unknown]

NARRATIVE: CASE EVENT DATE: 2016
